FAERS Safety Report 7939802-3 (Version None)
Quarter: 2011Q4

REPORT INFORMATION
  Report Type: 
  Country: None (occurrence: None)
  Receive Date: 20111125
  Receipt Date: 20111122
  Transmission Date: 20120403
  Serious: Yes (Death)
  Sender: FDA-Public Use
  Company Number: PHHY2011AR102572

PATIENT
  Sex: Female

DRUGS (1)
  1. EXELON [Suspect]
     Dosage: 9.5 MG, (PATCH 10CM)
     Route: 062

REACTIONS (2)
  - BRAIN NEOPLASM [None]
  - CARDIO-RESPIRATORY ARREST [None]
